FAERS Safety Report 17393427 (Version 1)
Quarter: 2020Q1

REPORT INFORMATION
  Report Type: Report from Study
  Country: FR (occurrence: FR)
  Receive Date: 20200208
  Receipt Date: 20200208
  Transmission Date: 20200409
  Serious: Yes (Hospitalization)
  Sender: FDA-Public Use
  Company Number: FR-ROCHE-2540771

PATIENT
  Age: 66 Year
  Sex: Female

DRUGS (2)
  1. BLINDED ATEZOLIZUMAB [Suspect]
     Active Substance: ATEZOLIZUMAB
     Indication: OVARIAN CANCER
     Dosage: ON 08-JAN-2020, SHE RECEIVED LAST DOSE OF ATEZOLIZUMAB/PLACEBO BEFORE THE EVENT.
     Route: 042
     Dates: start: 20170511, end: 20200108
  2. BEVACIZUMAB. [Suspect]
     Active Substance: BEVACIZUMAB
     Indication: OVARIAN CANCER
     Dosage: ON 08-JAN-2020, SHE RECEIVED LAST DOSE OF BEVACIZUMAB (15 MILLIGRAM PER KILOGRAM) BEFORE THE EVENT.
     Route: 042
     Dates: start: 20170511, end: 20200108

REACTIONS (1)
  - Acute coronary syndrome [Recovered/Resolved with Sequelae]

NARRATIVE: CASE EVENT DATE: 20200116
